FAERS Safety Report 11906544 (Version 1)
Quarter: 2016Q1

REPORT INFORMATION
  Report Type: Spontaneous
  Country: US (occurrence: None)
  Receive Date: 20160108
  Receipt Date: 20160108
  Transmission Date: 20160526
  Serious: Yes (Life-Threatening, Disabling, Other)
  Sender: FDA-Public Use
  Company Number: None

PATIENT
  Age: 55 Year
  Sex: Female
  Weight: 115.67 kg

DRUGS (3)
  1. SALT WATER IV [Suspect]
     Active Substance: SODIUM CHLORIDE
  2. VANCOMYCIN [Suspect]
     Active Substance: VANCOMYCIN
     Route: 042
  3. MAGNESIUM SULFATE. [Suspect]
     Active Substance: MAGNESIUM SULFATE
     Route: 042

REACTIONS (10)
  - Movement disorder [None]
  - Transient ischaemic attack [None]
  - Memory impairment [None]
  - Infusion site inflammation [None]
  - Carotid artery thrombosis [None]
  - Malaise [None]
  - Dizziness [None]
  - Hypotension [None]
  - Cognitive disorder [None]
  - Muscle spasms [None]
